FAERS Safety Report 11965198 (Version 1)
Quarter: 2016Q1

REPORT INFORMATION
  Report Type: Spontaneous
  Country: US (occurrence: US)
  Receive Date: 20160127
  Receipt Date: 20160127
  Transmission Date: 20160526
  Serious: Yes (Other)
  Sender: FDA-Public Use
  Company Number: US-ACCORD-037198

PATIENT

DRUGS (1)
  1. ESCITALOPRAM [Suspect]
     Active Substance: ESCITALOPRAM OXALATE
     Indication: PRODUCT USED FOR UNKNOWN INDICATION
     Dosage: TOOK THE MEDICATION FOR 3 WEEKS DAILY

REACTIONS (11)
  - Malaise [Unknown]
  - Product substitution issue [Unknown]
  - Migraine [Unknown]
  - Drug withdrawal syndrome [Unknown]
  - Hyperacusis [Unknown]
  - Impaired work ability [Unknown]
  - Photophobia [Unknown]
  - Headache [Unknown]
  - Paraesthesia [Unknown]
  - Disorientation [Unknown]
  - Depersonalisation/derealisation disorder [Unknown]
